FAERS Safety Report 18251869 (Version 2)
Quarter: 2021Q1

REPORT INFORMATION
  Report Type: Spontaneous
  Country: FR (occurrence: FR)
  Receive Date: 20200910
  Receipt Date: 20210211
  Transmission Date: 20210419
  Serious: Yes (Disabling)
  Sender: FDA-Public Use
  Company Number: FR-SA-2020SA245112

PATIENT
  Age: 50 Year
  Sex: Male

DRUGS (3)
  1. SUVREZA [Concomitant]
     Indication: TYPE IIA HYPERLIPIDAEMIA
     Dosage: 20MG/10MG
  2. LUMIRELAX [METHOCARBAMOL;METHYL NICOTINATE] [Concomitant]
     Active Substance: METHOCARBAMOL\METHYL NICOTINATE
  3. PRALUENT [Suspect]
     Active Substance: ALIROCUMAB
     Indication: TYPE IIA HYPERLIPIDAEMIA
     Dosage: 150 MG, QOW
     Route: 058
     Dates: start: 20200501

REACTIONS (4)
  - Tendon discomfort [Unknown]
  - Middle insomnia [Unknown]
  - Gait disturbance [Unknown]
  - Condition aggravated [Unknown]

NARRATIVE: CASE EVENT DATE: 2020
